FAERS Safety Report 17929278 (Version 1)
Quarter: 2020Q2

REPORT INFORMATION
  Report Type: Report from Study
  Country: US (occurrence: US)
  Receive Date: 20200623
  Receipt Date: 20200623
  Transmission Date: 20200714
  Serious: Yes (Hospitalization)
  Sender: FDA-Public Use
  Company Number: US-TEVA-2020-US-1790310

PATIENT
  Age: 24 Year
  Sex: Male

DRUGS (4)
  1. TENOFOVIR DISOPROXIL FUMARATE. [Suspect]
     Active Substance: TENOFOVIR DISOPROXIL FUMARATE
     Route: 048
  2. METFORMIN [Suspect]
     Active Substance: METFORMIN HYDROCHLORIDE
     Dosage: INGESTED UNKNOWN AMOUNT OF METFORMIN
     Route: 048
  3. EMTRICITABINE [Suspect]
     Active Substance: EMTRICITABINE
     Route: 048
  4. DARUNAVIR [Suspect]
     Active Substance: DARUNAVIR
     Route: 048

REACTIONS (3)
  - Agitation [Unknown]
  - Lactic acidosis [Recovered/Resolved]
  - Intentional overdose [Unknown]
